FAERS Safety Report 9266508 (Version 1)
Quarter: 2013Q2

REPORT INFORMATION
  Report Type: Spontaneous
  Country: ES (occurrence: ES)
  Receive Date: 20130502
  Receipt Date: 20130502
  Transmission Date: 20140414
  Serious: Yes (Other)
  Sender: FDA-Public Use
  Company Number: ES-BAYER-2013-052489

PATIENT
  Sex: Male

DRUGS (1)
  1. NEXAVAR [Suspect]
     Indication: RENAL CANCER STAGE IV
     Dosage: 800 MG DAILY DOSE
     Route: 048
     Dates: start: 200901, end: 20130419

REACTIONS (3)
  - Acute myocardial infarction [None]
  - Ejection fraction decreased [None]
  - Asthenia [None]
